FAERS Safety Report 6143942-1 (Version None)
Quarter: 2009Q2

REPORT INFORMATION
  Report Type: 
  Country: None (occurrence: None)
  Receive Date: 20090406
  Receipt Date: 20090325
  Transmission Date: 20091009
  Serious: Yes (Death, Hospitalization)
  Sender: FDA-Public Use
  Company Number: US-JNJFOC-20090306859

PATIENT
  Age: 6 Month
  Sex: Male
  Weight: 9.07 kg

DRUGS (3)
  1. TYLENOL (CAPLET) [Suspect]
  2. TYLENOL (CAPLET) [Suspect]
     Indication: PYREXIA
  3. IMMUNIZATION [Concomitant]
     Indication: IMMUNISATION
     Route: 050

REACTIONS (2)
  - COMA [None]
  - DRUG INEFFECTIVE [None]
